FAERS Safety Report 13648026 (Version 1)
Quarter: 2017Q2

REPORT INFORMATION
  Report Type: Spontaneous
  Country: JP (occurrence: JP)
  Receive Date: 20170613
  Receipt Date: 20170613
  Transmission Date: 20170830
  Serious: Yes (Other)
  Sender: FDA-Public Use
  Company Number: JP-PFIZER INC-2017252911

PATIENT
  Age: 58 Year
  Sex: Female

DRUGS (4)
  1. CELECOX [Suspect]
     Active Substance: CELECOXIB
     Indication: PAIN
     Dosage: UNK
  2. DOCETAXEL. [Suspect]
     Active Substance: DOCETAXEL
     Dosage: UNK
     Dates: start: 20130910
  3. LETROZOLE. [Suspect]
     Active Substance: LETROZOLE
     Dosage: UNK
     Dates: start: 20140109
  4. ZOLEDRONIC [Suspect]
     Active Substance: ZOLEDRONIC ACID
     Indication: METASTASES TO BONE
     Dosage: UNK
     Dates: start: 20141201

REACTIONS (8)
  - Neoplasm progression [Unknown]
  - Pain [Unknown]
  - Ankle fracture [Unknown]
  - Fall [Unknown]
  - Monoplegia [Unknown]
  - Hypophagia [Unknown]
  - Spinal column stenosis [Unknown]
  - Abdominal pain upper [Unknown]
